FAERS Safety Report 11347677 (Version 1)
Quarter: 2015Q3

REPORT INFORMATION
  Report Type: Spontaneous
  Country: US (occurrence: US)
  Receive Date: 20150803
  Receipt Date: 20150803
  Transmission Date: 20151125
  Serious: No
  Sender: FDA-Public Use
  Company Number: US-ELI_LILLY_AND_COMPANY-US201103003398

PATIENT
  Sex: Female

DRUGS (10)
  1. THYROID PREPARATIONS [Concomitant]
     Active Substance: UNSPECIFIED INGREDIENT
  2. MULTIVITAMIN [Concomitant]
     Active Substance: VITAMINS
  3. ZYPREXA [Suspect]
     Active Substance: OLANZAPINE
     Dosage: 5 MG, UNK
     Dates: start: 200906, end: 200908
  4. ALBUTEROL. [Concomitant]
     Active Substance: ALBUTEROL
  5. ZYPREXA [Suspect]
     Active Substance: OLANZAPINE
     Dosage: 2.5 MG, DAILY (1/D)
     Dates: start: 200908
  6. LEXAPRO [Concomitant]
     Active Substance: ESCITALOPRAM OXALATE
     Dates: start: 201012
  7. TYLENOL [Concomitant]
     Active Substance: ACETAMINOPHEN
  8. BETA BLOCKING AGENTS [Concomitant]
     Active Substance: UNSPECIFIED INGREDIENT
  9. CATAPRES /00171101/ [Concomitant]
     Active Substance: CLONIDINE
  10. CLONIDINE. [Concomitant]
     Active Substance: CLONIDINE

REACTIONS (4)
  - Upper respiratory tract infection [Unknown]
  - Disorientation [Unknown]
  - Distractibility [Unknown]
  - Wrong technique in product usage process [Unknown]
